FAERS Safety Report 9526648 (Version 1)
Quarter: 2013Q1

REPORT INFORMATION
  Report Type: Spontaneous
  Country: US (occurrence: None)
  Receive Date: 20130312
  Receipt Date: 20130312
  Transmission Date: 20140127
  Serious: No
  Sender: FDA-Public Use
  Company Number: TH-2012-00780

PATIENT
  Sex: Male

DRUGS (10)
  1. EGRIFTA [Suspect]
     Indication: LIPODYSTROPHY ACQUIRED
     Route: 058
     Dates: start: 20120810
  2. PREZISTA (DARUNAVIR ETHANOLATE) [Concomitant]
  3. ISENTRESS (RALTEGRAVIR POTASSIUM) CHEWABLE TABLET [Concomitant]
  4. NORVIR (RITONAVIR) [Concomitant]
  5. VIREAD (TENOFOVIR DISOPROXIL FUMARATE) [Concomitant]
  6. ABILIFY (ARIPIPRAZOLE) [Concomitant]
  7. EFFEXOR (VENLAFAXINE HYDROCHLORIDE) UNKNOWN [Concomitant]
  8. LORAZEPAM (LORAZEPAM) [Concomitant]
  9. ATORVASTATIN (ATORVASTATIN) [Concomitant]
  10. AMBIEN (ZOLPIDEM TARTRATE) [Concomitant]

REACTIONS (3)
  - Hepatic enzyme increased [None]
  - Nasopharyngitis [None]
  - Blood glucose increased [None]
